FAERS Safety Report 10474070 (Version 2)
Quarter: 2014Q4

REPORT INFORMATION
  Report Type: Spontaneous
  Country: FR (occurrence: FR)
  Receive Date: 20140924
  Receipt Date: 20141022
  Transmission Date: 20150528
  Serious: Yes (Death, Other)
  Sender: FDA-Public Use
  Company Number: FR-GLAXOSMITHKLINE-B1036326A

PATIENT
  Age: 80 Year
  Sex: Male
  Weight: 108 kg

DRUGS (3)
  1. INNOHEP [Concomitant]
     Active Substance: TINZAPARIN SODIUM
     Indication: PHLEBITIS
     Dosage: 35000 IU, QD
  2. COVERSYL [Concomitant]
     Active Substance: PERINDOPRIL
     Dosage: 10 MG, UNK
  3. VOTRIENT [Suspect]
     Active Substance: PAZOPANIB HYDROCHLORIDE
     Indication: RENAL CANCER METASTATIC
     Dosage: 600 MG, QD
     Route: 048
     Dates: start: 201407

REACTIONS (9)
  - Gastrointestinal haemorrhage [Unknown]
  - Epistaxis [Recovered/Resolved]
  - Shock haemorrhagic [Fatal]
  - Fatigue [Unknown]
  - Decreased appetite [Unknown]
  - Somnolence [Unknown]
  - Dyspnoea [Unknown]
  - Pericarditis [Unknown]
  - Pleural effusion [Unknown]

NARRATIVE: CASE EVENT DATE: 201407
